FAERS Safety Report 13944349 (Version 8)
Quarter: 2018Q2

REPORT INFORMATION
  Report Type: Spontaneous
  Country: JP (occurrence: JP)
  Receive Date: 20170907
  Receipt Date: 20180612
  Transmission Date: 20180711
  Serious: Yes (Death, Life-Threatening, Hospitalization, Other)
  Sender: FDA-Public Use
  Company Number: JP-009507513-1709JPN000011J

PATIENT
  Age: 73 Year
  Sex: Male
  Weight: 63 kg

DRUGS (7)
  1. IA CALL [Suspect]
     Active Substance: CISPLATIN
     Indication: THERAPEUTIC EMBOLISATION
     Dosage: 50 MG, UNK
     Route: 013
     Dates: start: 20170713, end: 20170713
  2. SITAGLIPTIN PHOSPHATE [Concomitant]
     Active Substance: SITAGLIPTIN PHOSPHATE
     Dosage: 50 MG, UNK
     Route: 048
  3. CANDESARTAN ACTAVIS [Concomitant]
     Active Substance: CANDESARTAN
     Dosage: 4 MG, UNK
     Route: 048
  4. ALLOPURINOL. [Concomitant]
     Active Substance: ALLOPURINOL
     Dosage: 100 MG, UNK
     Route: 048
  5. KEYTRUDA [Suspect]
     Active Substance: PEMBROLIZUMAB
     Indication: NODULAR MELANOMA
     Dosage: 140 MG, UNK
     Route: 041
     Dates: start: 20170315, end: 20170612
  6. VONOPRAZAN FUMARATE [Concomitant]
     Active Substance: VONOPRAZAN FUMURATE
     Dosage: 10 MG, UNK
     Route: 048
  7. LANTUS [Concomitant]
     Active Substance: INSULIN GLARGINE
     Dosage: 10 DF, UNK
     Route: 065

REACTIONS (8)
  - Thyroid disorder [Recovered/Resolved]
  - Adrenocorticotropic hormone deficiency [Unknown]
  - Adrenal disorder [Recovering/Resolving]
  - Hepatic cancer [Unknown]
  - Hypopituitarism [Fatal]
  - Overdose [Unknown]
  - Delirium [Unknown]
  - Mental disorder [Unknown]

NARRATIVE: CASE EVENT DATE: 2017
